FAERS Safety Report 7207811-8 (Version None)
Quarter: 2011Q1

REPORT INFORMATION
  Report Type: 
  Country: None (occurrence: None)
  Receive Date: 20110104
  Receipt Date: 20101230
  Transmission Date: 20110831
  Serious: Yes (Hospitalization, Other)
  Sender: FDA-Public Use
  Company Number: US-ASTRAZENECA-2007UW10984

PATIENT
  Age: 607 Month
  Sex: Female
  Weight: 91.6 kg

DRUGS (42)
  1. TRAZODONE [Concomitant]
     Dates: start: 20030829
  2. AMITRIPTYLINE HCL [Concomitant]
  3. CODEINE/GUAFENESIN [Concomitant]
  4. CROMOLYN SODIUM [Concomitant]
  5. DEXAMETH/DIPHENHYD/LIDOCAINE/MYLANTA [Concomitant]
  6. OMEPRAZOLE [Concomitant]
  7. ZYPREXA [Concomitant]
     Dates: start: 19960101
  8. TEMAZEPAM [Concomitant]
     Dates: start: 20060131, end: 20060302
  9. AMITRIPTYLINE [Concomitant]
  10. LITHIUM CARBONATE [Concomitant]
  11. AZITHROMYCIN [Concomitant]
  12. CLONIDINE HCL [Concomitant]
  13. DILTIAZEM HCL [Concomitant]
     Dates: start: 20050411
  14. FLUCONAZOLE [Concomitant]
  15. EFFEXOR [Concomitant]
     Dates: start: 20050331
  16. FLUNISOLIDE [Concomitant]
  17. IPRATROPIUM BROMIDE [Concomitant]
  18. FLUTICASONE/SALMET [Concomitant]
     Dosage: INHALE 1 INHALATION EVERY TWELVE HOURS
     Route: 055
     Dates: start: 20050310
  19. ACETIC ACID [Concomitant]
  20. ALBUTEROL SULFATE AND IPRATROPIUM BROMIDE [Concomitant]
     Dosage: INHALE 2 PUFFS FOUR TIMES DAILY
     Route: 055
     Dates: start: 20030926
  21. FORMOTEROL FUMARATE [Concomitant]
  22. TRAMADOL HCL [Concomitant]
  23. FLUOCINONIDE [Concomitant]
     Dosage: 0.05% APPLY OINTMENT TO AFFECTED AREA TWICE A DAY
     Route: 061
     Dates: start: 20050318
  24. VERAPAMIL [Concomitant]
     Indication: ESSENTIAL HYPERTENSION
     Dates: start: 20080929
  25. COZAAR [Concomitant]
     Indication: ESSENTIAL HYPERTENSION
     Dosage: 50 MG
     Dates: start: 20080929
  26. SEROQUEL [Suspect]
     Indication: DEPRESSION
     Dosage: 100-200 MG
     Route: 048
     Dates: start: 20030731, end: 20050304
  27. SEROQUEL [Suspect]
     Dosage: 100 MG AT NIGHT, 200 MG AT NIGHT
     Route: 048
     Dates: start: 20030731
  28. RISPERDAL [Concomitant]
  29. PAROXETINE [Concomitant]
     Dates: start: 20041129, end: 20060222
  30. IPRATROPIUM BROMIDE [Concomitant]
     Dosage: INHALE 1 AMPULE (2.5 ML) AS DIRECTED EVERY 6 HOURS
     Route: 055
     Dates: start: 20050201
  31. CLONAZEPAM [Concomitant]
  32. DEPAKOTE [Concomitant]
     Route: 048
     Dates: start: 20030829
  33. CLARITIN [Concomitant]
     Dates: start: 20050331
  34. DIVALPROEX SODIUM [Concomitant]
     Dates: start: 20030829, end: 20060126
  35. FLURAZEPAM [Concomitant]
  36. WELLBUTRIN SR [Concomitant]
  37. MONTELUKAST NA [Concomitant]
  38. PREDNISONE [Concomitant]
  39. TRAZODONE HYDROCHLORIDE [Concomitant]
     Indication: INSOMNIA
     Dosage: 50-100 MG
     Route: 048
     Dates: start: 20030829
  40. REMERON [Concomitant]
     Dates: start: 20050304
  41. SPIRIVA [Concomitant]
     Dosage: INHALE AS DIRECTED EVERY DAY
     Route: 055
     Dates: start: 20050310
  42. ALBUTEROL [Concomitant]
     Dosage: INHALE ONE PUFF EVERY 6 HOURS WHEN NEEDED
     Route: 055
     Dates: start: 20050310

REACTIONS (18)
  - DIABETES MELLITUS [None]
  - INSOMNIA [None]
  - ABDOMINAL PAIN LOWER [None]
  - ABDOMINAL PAIN [None]
  - PNEUMONIA [None]
  - TYPE 2 DIABETES MELLITUS [None]
  - DIABETIC NEPHROPATHY [None]
  - OBESITY [None]
  - NEURALGIA [None]
  - CHRONIC OBSTRUCTIVE PULMONARY DISEASE [None]
  - STRESS URINARY INCONTINENCE [None]
  - CONSTIPATION [None]
  - METABOLIC SYNDROME [None]
  - NEUROPATHY PERIPHERAL [None]
  - CORONARY ARTERY DISEASE [None]
  - FLUSHING [None]
  - TACHYCARDIA PAROXYSMAL [None]
  - DIARRHOEA [None]
